FAERS Safety Report 20712991 (Version 1)
Quarter: 2022Q2

REPORT INFORMATION
  Report Type: Report from Study
  Country: PH (occurrence: PH)
  Receive Date: 20220415
  Receipt Date: 20220415
  Transmission Date: 20220720
  Serious: Yes (Death)
  Sender: FDA-Public Use
  Company Number: PH-JNJFOC-20220128632

PATIENT
  Age: 66 Year
  Sex: Male

DRUGS (14)
  1. ZYTIGA [Suspect]
     Active Substance: ABIRATERONE ACETATE
     Indication: Prostate cancer metastatic
     Route: 048
     Dates: start: 202106, end: 202109
  2. ZYTIGA [Suspect]
     Active Substance: ABIRATERONE ACETATE
     Route: 048
     Dates: start: 202111
  3. ZYTIGA [Suspect]
     Active Substance: ABIRATERONE ACETATE
     Route: 048
     Dates: start: 202201, end: 202203
  4. PREDNISONE [Concomitant]
     Active Substance: PREDNISONE
     Indication: Prostate cancer metastatic
     Route: 048
     Dates: start: 202106
  5. ZOLEDRONIC ACID [Concomitant]
     Active Substance: ZOLEDRONIC ACID
     Indication: Product used for unknown indication
     Route: 041
  6. CALTRATE PLUS [CALCIUM;COLECALCIFEROL;COPPER;MAGNESIUM;MANGANESE;ZINC] [Concomitant]
     Indication: Mineral supplementation
     Route: 048
     Dates: start: 202111
  7. GABAPENTIN [Concomitant]
     Active Substance: GABAPENTIN
     Indication: Bone pain
     Route: 048
     Dates: start: 202106
  8. OXYCODONE HYDROCHLORIDE [Concomitant]
     Active Substance: OXYCODONE HYDROCHLORIDE
     Indication: Bone pain
     Route: 048
  9. FENTANYL [Concomitant]
     Active Substance: FENTANYL
     Indication: Pain
     Route: 062
  10. SANGOBION [BIOTIN;FERROUS GLUCONATE;NICOTINAMIDE;PYRIDOXINE HYDROCHLOR [Concomitant]
     Indication: Vitamin supplementation
     Route: 048
  11. CALTRATE PLUS [CALCIUM;COLECALCIFEROL;COPPER;MAGNESIUM;MANGANESE;ZINC] [Concomitant]
     Indication: Vitamin supplementation
     Route: 065
  12. MOSEGOR [Concomitant]
     Indication: Vitamin supplementation
     Route: 048
  13. OXYCODONE HYDROCHLORIDE [Concomitant]
     Active Substance: OXYCODONE HYDROCHLORIDE
     Indication: Pain
     Route: 048
  14. DOMPERIDONE\PANTOPRAZOLE SODIUM [Concomitant]
     Active Substance: DOMPERIDONE\PANTOPRAZOLE SODIUM
     Indication: Antacid therapy
     Dosage: 40MG/30MG
     Route: 048

REACTIONS (7)
  - Acute coronary syndrome [Fatal]
  - Asthenia [Not Recovered/Not Resolved]
  - Bone pain [Not Recovered/Not Resolved]
  - COVID-19 [Recovered/Resolved]
  - Prostatic specific antigen increased [Not Recovered/Not Resolved]
  - Product use issue [Unknown]
  - Off label use [Unknown]

NARRATIVE: CASE EVENT DATE: 20210901
